FAERS Safety Report 7716009-6 (Version None)
Quarter: 2011Q3

REPORT INFORMATION
  Report Type: 
  Country: None (occurrence: None)
  Receive Date: 20110812
  Receipt Date: 20110503
  Transmission Date: 20111222
  Serious: Yes (Hospitalization)
  Sender: FDA-Public Use
  Company Number: MEDI-0012786

PATIENT
  Age: 4 Month
  Sex: Female

DRUGS (3)
  1. PREVACID [Concomitant]
  2. SYNAGIS [Suspect]
     Dates: start: 20110125, end: 20110225
  3. MYLANTA (SIMETICONE) [Concomitant]

REACTIONS (1)
  - RESPIRATORY SYNCYTIAL VIRUS TEST POSITIVE [None]
